FAERS Safety Report 8720520 (Version 2)
Quarter: 2015Q3

REPORT INFORMATION
  Report Type: Report from Study
  Country: US (occurrence: US)
  Receive Date: 20120813
  Receipt Date: 20150713
  Transmission Date: 20151125
  Serious: Yes (Hospitalization, Other)
  Sender: FDA-Public Use
  Company Number: US-ROCHE-1098686

PATIENT
  Sex: Male

DRUGS (5)
  1. ASPIRIN ENTERIC COATED [Concomitant]
     Active Substance: ASPIRIN
  2. LIDOCAINE. [Concomitant]
     Active Substance: LIDOCAINE
  3. TENORMIN [Concomitant]
     Active Substance: ATENOLOL
     Route: 048
  4. TENORMIN [Concomitant]
     Active Substance: ATENOLOL
     Route: 042
  5. ACTIVASE [Suspect]
     Active Substance: ALTEPLASE
     Indication: ACUTE MYOCARDIAL INFARCTION
     Route: 042

REACTIONS (4)
  - Chest injury [Unknown]
  - Ventricular extrasystoles [Unknown]
  - Cardiac failure congestive [Recovered/Resolved]
  - Hypotension [Recovered/Resolved]
